FAERS Safety Report 13287960 (Version 1)
Quarter: 2017Q1

REPORT INFORMATION
  Report Type: Spontaneous
  Country: CA (occurrence: CA)
  Receive Date: 20170302
  Receipt Date: 20170302
  Transmission Date: 20170428
  Serious: Yes (Other)
  Sender: FDA-Public Use
  Company Number: CA-BAXTER-2017BAX008676

PATIENT
  Age: 36 Year
  Sex: Male

DRUGS (8)
  1. METHYLPREDNISOLONE NOS [Suspect]
     Active Substance: METHYLPREDNISOLONE
     Indication: THROMBOTIC THROMBOCYTOPENIC PURPURA
     Dosage: NOT SPECIFIED
     Route: 065
  2. RITUXIMAB [Suspect]
     Active Substance: RITUXIMAB
     Route: 065
  3. ACT BORTEZOMIB [Suspect]
     Active Substance: BORTEZOMIB
     Indication: THROMBOTIC THROMBOCYTOPENIC PURPURA
     Dosage: SINGLE USE VIAL, DOSAGE FORM POWDER FOR SOLUTION INTRAVENOUS
     Route: 065
  4. ACT BORTEZOMIB [Suspect]
     Active Substance: BORTEZOMIB
     Dosage: SINGLE USE VIAL, DOSAGE FORM POWDER FOR SOLUTION INTRAVENOUS
     Route: 042
  5. APO-CYCLOSPORINE [Suspect]
     Active Substance: CYCLOSPORINE
     Indication: IMMUNOSUPPRESSANT DRUG THERAPY
     Route: 048
  6. PROCYTOX CYCLOPHOSPHAMIDE TAB50MG [Suspect]
     Active Substance: CYCLOPHOSPHAMIDE
     Route: 065
  7. PROCYTOX CYCLOPHOSPHAMIDE TAB50MG [Suspect]
     Active Substance: CYCLOPHOSPHAMIDE
     Indication: THROMBOTIC THROMBOCYTOPENIC PURPURA
     Route: 065
  8. RITUXIMAB [Suspect]
     Active Substance: RITUXIMAB
     Indication: THROMBOTIC THROMBOCYTOPENIC PURPURA
     Route: 065

REACTIONS (11)
  - Brain oedema [Unknown]
  - Pneumonia klebsiella [Unknown]
  - Device related sepsis [Unknown]
  - Abdominal abscess [None]
  - Enterococcal infection [Unknown]
  - Empyema [Unknown]
  - Cerebral infarction [Unknown]
  - Therapy non-responder [Unknown]
  - Hemianopia [Unknown]
  - Candida infection [Unknown]
  - Staphylococcal infection [Unknown]
